FAERS Safety Report 7437838-2 (Version None)
Quarter: 2011Q2

REPORT INFORMATION
  Report Type: 
  Country: None (occurrence: None)
  Receive Date: 20110426
  Receipt Date: 20110420
  Transmission Date: 20111010
  Serious: Yes (Hospitalization)
  Sender: FDA-Public Use
  Company Number: A0893048A

PATIENT
  Age: 67 Year
  Sex: Female
  Weight: 96.4 kg

DRUGS (10)
  1. GLYBURIDE [Concomitant]
  2. LISINOPRIL [Concomitant]
  3. ZOCOR [Concomitant]
  4. AVANDIA [Suspect]
     Indication: DIABETES MELLITUS
     Route: 048
     Dates: start: 20051118, end: 20081212
  5. ASPIRIN [Concomitant]
  6. LASIX [Concomitant]
  7. LIPITOR [Concomitant]
  8. LEVOXYL [Concomitant]
  9. AVANDAMET [Suspect]
     Route: 048
     Dates: start: 20050714, end: 20070402
  10. ATENOLOL [Concomitant]

REACTIONS (3)
  - CEREBROVASCULAR ACCIDENT [None]
  - ANGINA UNSTABLE [None]
  - ACUTE MYOCARDIAL INFARCTION [None]
